FAERS Safety Report 9472696 (Version 2)
Quarter: 2014Q1

REPORT INFORMATION
  Report Type: Spontaneous
  Country: BR (occurrence: BR)
  Receive Date: 20130823
  Receipt Date: 20140108
  Transmission Date: 20141002
  Serious: Yes (Other)
  Sender: FDA-Public Use
  Company Number: BR-AMGEN-BRASP2013059459

PATIENT
  Age: 62 Year
  Sex: Female
  Weight: 50 kg

DRUGS (2)
  1. ENBREL [Suspect]
     Indication: RHEUMATOID ARTHRITIS
     Dosage: 50 MG, WEEKLY
     Route: 065
     Dates: start: 2012, end: 201307
  2. DIPYRONE [Concomitant]
     Dosage: UNK, AS NEEDED

REACTIONS (1)
  - Arthropathy [Unknown]
